FAERS Safety Report 18747101 (Version 1)
Quarter: 2021Q1

REPORT INFORMATION
  Report Type: Spontaneous
  Country: US (occurrence: US)
  Receive Date: 20210115
  Receipt Date: 20210115
  Transmission Date: 20210419
  Serious: Yes (Hospitalization, Other)
  Sender: FDA-Public Use
  Company Number: US-TORRENT-00010654

PATIENT
  Age: 69 Year
  Sex: Female

DRUGS (1)
  1. DULOXETINE. [Suspect]
     Active Substance: DULOXETINE
     Indication: DEPRESSION
     Dosage: 60 MG DAILY

REACTIONS (4)
  - Peripheral ischaemia [Unknown]
  - Hypertension [Unknown]
  - Cyanosis [Recovered/Resolved]
  - Atrial tachycardia [Unknown]
